FAERS Safety Report 6603330 (Version 2)
Quarter: 2012Q4

REPORT INFORMATION
  Report Type: 
  Country: ES (occurrence: ES)
  Receive Date: 20080401
  Receipt Date: 20121108
  Transmission Date: 20130627
  Serious: Yes (Life-Threatening, Hospitalization, Other)
  Sender: FDA-Public Use
  Company Number: ES-ELI_LILLY_AND_COMPANY-ES200803005127

PATIENT
  Age: 72 Year
  Sex: Male

DRUGS (4)
  1. PROZAC [Suspect]
     Dosage: 20 mg, 3/D
     Route: 048
  2. ADIRO [Interacting]
     Indication: CARDIOVASCULAR EVENT PROPHYLAXIS
     Dosage: 100 mg, daily (1/D)
     Route: 048
     Dates: end: 20071121
  3. SOMAZINA [Concomitant]
     Indication: DEPRESSION
     Dosage: 1 ml, daily (1/D)
     Route: 048
  4. ENALAPRIL [Concomitant]
     Indication: HYPERTENSION
     Dosage: 20 mg, daily (1/D)
     Route: 048

REACTIONS (2)
  - Cerebral haematoma [Recovering/Resolving]
  - Drug interaction [Recovering/Resolving]
